FAERS Safety Report 7538451-9 (Version None)
Quarter: 2011Q2

REPORT INFORMATION
  Report Type: 
  Country: None (occurrence: None)
  Receive Date: 20110609
  Receipt Date: 20110531
  Transmission Date: 20111010
  Serious: Yes (Hospitalization, Other)
  Sender: FDA-Public Use
  Company Number: US-MERCK-1103USA03471

PATIENT
  Age: 84 Year
  Sex: Female
  Weight: 47 kg

DRUGS (2)
  1. JANUVIA [Suspect]
     Indication: DIABETES MELLITUS
     Route: 048
     Dates: start: 20090101, end: 20110401
  2. JANUVIA [Suspect]
     Route: 048
     Dates: start: 20110401

REACTIONS (5)
  - PANCREATIC CARCINOMA [None]
  - PULMONARY EMBOLISM [None]
  - LUNG DISORDER [None]
  - UTERINE ATROPHY [None]
  - OVARIAN CYST [None]
